FAERS Safety Report 6496125-X (Version None)
Quarter: 2009Q4

REPORT INFORMATION
  Report Type: 
  Country: None (occurrence: None)
  Receive Date: 20091214
  Receipt Date: 20091002
  Transmission Date: 20100525
  Serious: Yes (Other)
  Sender: FDA-Public Use
  Company Number: US-BRISTOL-MYERS SQUIBB COMPANY-14803951

PATIENT
  Age: 24 Year
  Sex: Female
  Weight: 86 kg

DRUGS (2)
  1. ABILIFY [Suspect]
     Indication: DEPRESSION
     Dosage: 1/2 TABLET BID
     Dates: start: 20090401
  2. ABILIFY [Suspect]
     Indication: ANXIETY
     Dosage: 1/2 TABLET BID
     Dates: start: 20090401

REACTIONS (2)
  - CONTUSION [None]
  - CONVULSION [None]
